FAERS Safety Report 5849720-2 (Version None)
Quarter: 2008Q3

REPORT INFORMATION
  Report Type: 
  Country: None (occurrence: None)
  Receive Date: 20080819
  Receipt Date: 20080807
  Transmission Date: 20090109
  Serious: Yes (Hospitalization)
  Sender: FDA-Public Use
  Company Number: IN-BRISTOL-MYERS SQUIBB COMPANY-14261978

PATIENT
  Age: 24 Year
  Sex: Female
  Weight: 50 kg

DRUGS (10)
  1. ABATACEPT [Suspect]
     Indication: SYSTEMIC LUPUS ERYTHEMATOSUS
     Route: 042
     Dates: start: 20080414
  2. BLINDED: PLACEBO [Suspect]
     Indication: SYSTEMIC LUPUS ERYTHEMATOSUS
     Route: 042
     Dates: start: 20080414
  3. PREDNISOLONE [Suspect]
     Indication: SYSTEMIC LUPUS ERYTHEMATOSUS
     Dates: start: 20070423
  4. MYCOPHENOLATE MOFETIL [Suspect]
     Dates: start: 20080414
  5. HYDROXYCHLOROQUINE [Concomitant]
     Indication: SYSTEMIC LUPUS ERYTHEMATOSUS
     Dates: start: 20070423
  6. ELEMENTAL CALCIUM [Concomitant]
     Dates: start: 20071113
  7. VITAMIN D3 [Concomitant]
     Dates: start: 20071113
  8. OMEPRAZOLE [Concomitant]
     Dates: start: 20071113
  9. ENALAPRIL [Concomitant]
     Dates: start: 20071113
  10. DICLOFENAC SODIUM [Concomitant]
     Dates: start: 20070423, end: 20070627

REACTIONS (1)
  - DISSEMINATED TUBERCULOSIS [None]
